FAERS Safety Report 10747729 (Version 7)
Quarter: 2015Q4

REPORT INFORMATION
  Report Type: Spontaneous
  Country: US (occurrence: US)
  Receive Date: 20150129
  Receipt Date: 20151130
  Transmission Date: 20160304
  Serious: Yes (Hospitalization, Other)
  Sender: FDA-Public Use
  Company Number: US-PFIZER INC-2015031958

PATIENT
  Age: 81 Year
  Sex: Female
  Weight: 71 kg

DRUGS (8)
  1. AROMASIN [Suspect]
     Active Substance: EXEMESTANE
     Dosage: 25 MG, 1X/DAY
     Route: 048
     Dates: start: 201005
  2. AROMASIN [Suspect]
     Active Substance: EXEMESTANE
     Dosage: 25 MG, ONCE A DAY
     Route: 048
     Dates: start: 201006
  3. BENAZEPRIL [Concomitant]
     Active Substance: BENAZEPRIL HYDROCHLORIDE
     Dosage: 20 MG, DAILY (EACH MORNING)
     Route: 048
     Dates: start: 1999
  4. ADVIL [Concomitant]
     Active Substance: IBUPROFEN
     Dosage: 400 MG (2 TABLETS OF 200 MG), AS NEEDED (DAILY AT NIGHT)
     Dates: start: 1980
  5. AROMASIN [Suspect]
     Active Substance: EXEMESTANE
     Dosage: 25 MG, 1X/DAY
     Route: 048
  6. XANAX [Concomitant]
     Active Substance: ALPRAZOLAM
     Indication: SLEEP DISORDER
     Dosage: 1 OR 1/2 TABLET, AS NEEDED (AT NIGHT)
     Dates: start: 2009
  7. XANAX [Concomitant]
     Active Substance: ALPRAZOLAM
     Indication: DEPRESSION
  8. AROMASIN [Suspect]
     Active Substance: EXEMESTANE
     Indication: BREAST CANCER METASTATIC
     Dosage: 25 MG, 1X/DAY
     Dates: start: 200906

REACTIONS (15)
  - Depressed mood [Recovered/Resolved]
  - Breast cancer metastatic [Not Recovered/Not Resolved]
  - Urinary tract infection [Not Recovered/Not Resolved]
  - Tooth disorder [Recovered/Resolved]
  - Impaired driving ability [Not Recovered/Not Resolved]
  - Fall [Recovered/Resolved]
  - Disease progression [Not Recovered/Not Resolved]
  - Arthritis [Unknown]
  - Dizziness [Recovered/Resolved]
  - Nervousness [Not Recovered/Not Resolved]
  - Gait disturbance [Not Recovered/Not Resolved]
  - Sinus disorder [Not Recovered/Not Resolved]
  - Abdominal discomfort [Not Recovered/Not Resolved]
  - Anaemia [Not Recovered/Not Resolved]
  - Paraproteinaemia [Not Recovered/Not Resolved]

NARRATIVE: CASE EVENT DATE: 200906
